FAERS Safety Report 16267783 (Version 3)
Quarter: 2019Q2

REPORT INFORMATION
  Report Type: Spontaneous
  Country: US (occurrence: US)
  Receive Date: 20190503
  Receipt Date: 20190625
  Transmission Date: 20190711
  Serious: No
  Sender: FDA-Public Use
  Company Number: US-JNJFOC-20190418341

PATIENT
  Age: 58 Year
  Sex: Female
  Weight: 90.8 kg

DRUGS (1)
  1. INVEGA [Suspect]
     Active Substance: PALIPERIDONE
     Indication: PRODUCT USED FOR UNKNOWN INDICATION
     Dosage: DAILY AT NIGHT?BEGAN PALIPERIDONE PRIOR TO 2014 PER PHARMACIST
     Route: 048

REACTIONS (6)
  - Hallucination, auditory [Unknown]
  - Drug ineffective [Unknown]
  - Insomnia [Unknown]
  - Product residue present [Unknown]
  - Inappropriate schedule of product administration [Unknown]
  - Off label use [Unknown]

NARRATIVE: CASE EVENT DATE: 201904
